FAERS Safety Report 7820716-4 (Version None)
Quarter: 2011Q4

REPORT INFORMATION
  Report Type: 
  Country: None (occurrence: None)
  Receive Date: 20111018
  Receipt Date: 20111007
  Transmission Date: 20120403
  Serious: Yes (Hospitalization, Other)
  Sender: FDA-Public Use
  Company Number: US-BAXTER-2011BH030178

PATIENT
  Sex: Female

DRUGS (2)
  1. SODIUM THIOSULFATE [Suspect]
     Indication: CALCIPHYLAXIS
     Route: 065
  2. DIANEAL [Suspect]
     Indication: PERITONEAL DIALYSIS
     Route: 033

REACTIONS (6)
  - FURUNCLE [None]
  - GAIT DISTURBANCE [None]
  - OEDEMA PERIPHERAL [None]
  - MOBILITY DECREASED [None]
  - HYPOTENSION [None]
  - FLUID OVERLOAD [None]
